FAERS Safety Report 4654934-3 (Version None)
Quarter: 2005Q2

REPORT INFORMATION
  Report Type: 
  Country: None (occurrence: None)
  Receive Date: 20050504
  Receipt Date: 20050421
  Transmission Date: 20051028
  Serious: Yes (Hospitalization)
  Sender: FDA-Public Use
  Company Number: 2005063982

PATIENT
  Sex: Female

DRUGS (4)
  1. DOSTINEX [Suspect]
     Indication: BREAST ENGORGEMENT
     Dosage: 0.25 MG (0.25 MG, SINGLE DOSE), ORAL
     Route: 048
     Dates: start: 20010819, end: 20010819
  2. SALVIA (SALVIA) [Concomitant]
  3. RAMIPRIL [Concomitant]
  4. HOMEOPATIC PREPARATION (HOMEOPATIC PREPARATION) [Concomitant]

REACTIONS (15)
  - ACTIVITIES OF DAILY LIVING IMPAIRED [None]
  - ANXIETY [None]
  - BLINDNESS UNILATERAL [None]
  - CARDIOVASCULAR DISORDER [None]
  - CYANOPSIA [None]
  - DEPRESSION [None]
  - DIZZINESS [None]
  - DRUG EXPOSURE VIA BREAST MILK [None]
  - EPISTAXIS [None]
  - HEADACHE [None]
  - HEMIANOPIA [None]
  - PAIN [None]
  - PARAESTHESIA [None]
  - PSYCHOSOMATIC DISEASE [None]
  - SUPPRESSED LACTATION [None]
